FAERS Safety Report 5672163-1 (Version None)
Quarter: 2008Q1

REPORT INFORMATION
  Report Type: 
  Country: None (occurrence: None)
  Receive Date: 20080319
  Receipt Date: 20080313
  Transmission Date: 20080703
  Serious: Yes (Hospitalization)
  Sender: FDA-Public Use
  Company Number: FR-WYE-G01241708

PATIENT
  Sex: Male

DRUGS (4)
  1. PIPERACILLIN SODIUM AND TAZOBACTAM SODIUM [Suspect]
     Dosage: 2 G / 250 MG
     Route: 042
     Dates: start: 20080117
  2. PREVISCAN [Interacting]
     Indication: ARRHYTHMIA
     Dosage: 20 MG TOTAL DAILY
     Route: 048
     Dates: end: 20080116
  3. PREVISCAN [Interacting]
     Indication: ATRIAL FIBRILLATION
  4. TAVANIC [Interacting]
     Dosage: 5 MG/ML
     Route: 042
     Dates: start: 20080117

REACTIONS (4)
  - CONDITION AGGRAVATED [None]
  - DRUG INTERACTION [None]
  - PROTHROMBIN TIME PROLONGED [None]
  - VESSEL PUNCTURE SITE HAEMORRHAGE [None]
